FAERS Safety Report 8208109 (Version 2)
Quarter: 2012Q4

REPORT INFORMATION
  Report Type: 
  Country: US (occurrence: US)
  Receive Date: 20111028
  Receipt Date: 20121203
  Transmission Date: 20130627
  Serious: Yes (Other)
  Sender: FDA-Public Use
  Company Number: US-ROCHE-1007579

PATIENT
  Age: 24 Year
  Sex: Male
  Weight: 52.21 kg

DRUGS (2)
  1. ACCUTANE [Suspect]
     Indication: ACNE
     Route: 048
     Dates: start: 19871013, end: 198712
  2. ACCUTANE [Suspect]
     Route: 048
     Dates: start: 19960925, end: 19970224

REACTIONS (9)
  - Crohn^s disease [Unknown]
  - Colitis [Unknown]
  - Inflammatory bowel disease [Unknown]
  - Depression [Unknown]
  - Injury [Unknown]
  - Colitis ulcerative [Unknown]
  - Blood triglycerides increased [Recovering/Resolving]
  - Pruritus [Unknown]
  - Dry skin [Unknown]
